FAERS Safety Report 7908130-4 (Version None)
Quarter: 2011Q4

REPORT INFORMATION
  Report Type: 
  Country: None (occurrence: None)
  Receive Date: 20111111
  Receipt Date: 20111102
  Transmission Date: 20120403
  Serious: No
  Sender: FDA-Public Use
  Company Number: US-BIOGENIDEC-2011BI017428

PATIENT
  Age: 47 Year
  Sex: Female

DRUGS (1)
  1. TYSABRI [Suspect]
     Indication: MULTIPLE SCLEROSIS
     Route: 042
     Dates: start: 20110328, end: 20110812

REACTIONS (6)
  - FALL [None]
  - MIGRAINE [None]
  - CONTUSION [None]
  - FOOT FRACTURE [None]
  - FATIGUE [None]
  - DIZZINESS [None]
